FAERS Safety Report 6062927-7 (Version None)
Quarter: 2009Q1

REPORT INFORMATION
  Report Type: 
  Country: None (occurrence: None)
  Receive Date: 20090203
  Receipt Date: 20090129
  Transmission Date: 20090719
  Serious: Yes (Congenital Anomaly)
  Sender: FDA-Public Use
  Company Number: A0679834A

PATIENT
  Sex: Female

DRUGS (1)
  1. PAXIL [Suspect]
     Indication: DEPRESSION
     Dates: start: 19970101

REACTIONS (9)
  - ATRIOVENTRICULAR BLOCK [None]
  - CARDIOMEGALY [None]
  - COARCTATION OF THE AORTA [None]
  - DRUG EXPOSURE DURING PREGNANCY [None]
  - HETEROTAXIA [None]
  - HYPOPLASTIC LEFT HEART SYNDROME [None]
  - MITRAL VALVE STENOSIS [None]
  - PULMONARY ARTERIOPATHY [None]
  - VENTRICULAR SEPTAL DEFECT [None]
